FAERS Safety Report 4300715-X (Version None)
Quarter: 2004Q1

REPORT INFORMATION
  Report Type: 
  Country: None (occurrence: None)
  Receive Date: 20040218
  Receipt Date: 20040129
  Transmission Date: 20041129
  Serious: Yes (Other)
  Sender: FDA-Public Use
  Company Number: US_990928458

PATIENT
  Age: 70 Year
  Sex: Female
  Weight: 60 kg

DRUGS (2)
  1. EVISTA [Suspect]
     Indication: OSTEOPOROSIS
     Dosage: 60 MG/ 1DAY
     Dates: start: 19980101, end: 20030101
  2. SYNTHROID [Concomitant]

REACTIONS (3)
  - ACNE [None]
  - BREAST CANCER [None]
  - UTERINE POLYP [None]
